FAERS Safety Report 5764603-4 (Version None)
Quarter: 2008Q2

REPORT INFORMATION
  Report Type: 
  Country: None (occurrence: None)
  Receive Date: 20080611
  Receipt Date: 20080529
  Transmission Date: 20081010
  Serious: No
  Sender: FDA-Public Use
  Company Number: US-BAYER-200824351NA

PATIENT
  Age: 47 Year
  Sex: Male
  Weight: 91 kg

DRUGS (1)
  1. MAGNEVIST [Suspect]
     Indication: NUCLEAR MAGNETIC RESONANCE IMAGING BRAIN
     Dosage: TOTAL DAILY DOSE: 17 ML  UNIT DOSE: 20 ML
     Route: 042
     Dates: start: 20080528, end: 20080528

REACTIONS (2)
  - PRURITUS [None]
  - URTICARIA [None]
